FAERS Safety Report 10874500 (Version 2)
Quarter: 2015Q1

REPORT INFORMATION
  Report Type: Spontaneous
  Country: FI (occurrence: None)
  Receive Date: 20150224
  Receipt Date: 20150324
  Transmission Date: 20150721
  Serious: Yes (Hospitalization)
  Sender: FDA-Public Use
  Company Number: UCM201502-000138

PATIENT
  Sex: Male

DRUGS (1)
  1. DIVALPROEX SODIUM. [Suspect]
     Active Substance: DIVALPROEX SODIUM
     Indication: EPILEPSY

REACTIONS (12)
  - Impaired work ability [None]
  - Hyperammonaemia [None]
  - Loss of consciousness [None]
  - Haemodialysis [None]
  - White blood cell count decreased [None]
  - Brain oedema [None]
  - Arrhythmia [None]
  - Tremor [None]
  - Toxicity to various agents [None]
  - Pneumonia aspiration [None]
  - Polydipsia [None]
  - Fatigue [None]
